FAERS Safety Report 15632761 (Version 3)
Quarter: 2019Q2

REPORT INFORMATION
  Report Type: Spontaneous
  Country: BR (occurrence: BR)
  Receive Date: 20181119
  Receipt Date: 20190509
  Transmission Date: 20190711
  Serious: Yes (Hospitalization, Other)
  Sender: FDA-Public Use
  Company Number: BR-PFIZER INC-2018433206

PATIENT
  Age: 72 Year
  Sex: Female
  Weight: 47 kg

DRUGS (3)
  1. XALATAN [Concomitant]
     Active Substance: LATANOPROST
     Dosage: UNK
  2. LORAX (LORAZEPAM) [Suspect]
     Active Substance: LORAZEPAM
     Dosage: 1 MG, 2X/DAY
  3. LORAX (LORAZEPAM) [Suspect]
     Active Substance: LORAZEPAM
     Indication: SLEEP DISORDER
     Dosage: 3 MG, DAILY (ONE TABLET AND A HALF)
     Dates: start: 1993

REACTIONS (12)
  - Nerve injury [Recovered/Resolved]
  - Hyperhidrosis [Not Recovered/Not Resolved]
  - Drug dependence [Not Recovered/Not Resolved]
  - Feeling of despair [Not Recovered/Not Resolved]
  - Dry throat [Not Recovered/Not Resolved]
  - Intervertebral disc protrusion [Not Recovered/Not Resolved]
  - Intentional product misuse [Recovered/Resolved]
  - Cerebrovascular accident [Recovered/Resolved]
  - Paraesthesia [Not Recovered/Not Resolved]
  - Back disorder [Not Recovered/Not Resolved]
  - Hypertension [Recovered/Resolved]
  - Drug ineffective [Not Recovered/Not Resolved]

NARRATIVE: CASE EVENT DATE: 2004
